FAERS Safety Report 5936507-5 (Version None)
Quarter: 2008Q4

REPORT INFORMATION
  Report Type: 
  Country: None (occurrence: None)
  Receive Date: 20081030
  Receipt Date: 20081022
  Transmission Date: 20090506
  Serious: Yes (Other)
  Sender: FDA-Public Use
  Company Number: US-GILEAD-2008-0018675

PATIENT
  Sex: Male

DRUGS (3)
  1. TRUVADA [Suspect]
  2. BOOSTED LEXIVA [Suspect]
  3. RITONAVIR [Suspect]

REACTIONS (1)
  - HENOCH-SCHONLEIN PURPURA [None]
